FAERS Safety Report 17771547 (Version 3)
Quarter: 2020Q3

REPORT INFORMATION
  Report Type: Spontaneous
  Country: FR (occurrence: FR)
  Receive Date: 20200512
  Receipt Date: 20200703
  Transmission Date: 20201102
  Serious: Yes (Life-Threatening, Hospitalization, Other)
  Sender: FDA-Public Use
  Company Number: NVSC2020FR124558

PATIENT
  Age: 24 Year
  Sex: Male

DRUGS (19)
  1. DULOXETINE. [Suspect]
     Active Substance: DULOXETINE
     Dosage: 26 DF, ONCE
     Route: 065
  2. ATROPINE. [Suspect]
     Active Substance: ATROPINE
     Indication: PRODUCT USED FOR UNKNOWN INDICATION
     Dosage: UNK
     Route: 065
  3. DULOXETINE. [Suspect]
     Active Substance: DULOXETINE
     Indication: ANTIDEPRESSANT THERAPY
     Dosage: 60 MG, QD
     Route: 065
  4. FLUMAZENIL. [Suspect]
     Active Substance: FLUMAZENIL
     Indication: SEDATION
     Dosage: UNK
     Route: 065
  5. CYMBALTA [Suspect]
     Active Substance: DULOXETINE HYDROCHLORIDE
     Indication: PRODUCT USED FOR UNKNOWN INDICATION
     Dosage: IN THE MORNING
     Route: 048
  6. LAMALINE (ACETAMINOPHEN\CAFFEINE\OPIUM) [Suspect]
     Active Substance: ACETAMINOPHEN\CAFFEINE\OPIUM
     Indication: SUICIDE ATTEMPT
     Dosage: BETWEEN 3:30 P.M. AND 7:30 P.M., THE PATIENT INGESTED IN TOTAL
     Route: 048
  7. BISOPROLOL FUMARATE. [Suspect]
     Active Substance: BISOPROLOL FUMARATE
     Indication: SUICIDE ATTEMPT
     Dosage: 25 MG, ONCE/SINGLE, BETWEEN 3:30 P.M. AND 7:30 P.M., THE PATIENT INGESTED IN TOTAL
     Route: 065
  8. ACETAMINOPHEN (PARACETAMOL) [Suspect]
     Active Substance: ACETAMINOPHEN
     Indication: TOXICITY TO VARIOUS AGENTS
     Dosage: 21 G, QD
     Route: 048
  9. DIAZEPAM. [Suspect]
     Active Substance: DIAZEPAM
     Indication: SUICIDE ATTEMPT
     Dosage: 700 MG, QD, BETWEEN 3:30 P.M. AND 7:30 P.M., THE PATIENT INGESTED IN TOTAL: 700 MG DIAZEPAM
     Route: 065
  10. METOPIMAZINE [Suspect]
     Active Substance: METOPIMAZINE
     Dosage: 20 DF, BETWEEN 3:30 P.M. AND 7:30 P.M., THE PATIENT INGESTED IN TOTAL
     Route: 048
  11. METOPIMAZINE [Suspect]
     Active Substance: METOPIMAZINE
     Indication: SUICIDE ATTEMPT
     Dosage: 20 TABLETS
     Route: 065
  12. NORADRENALINE [Suspect]
     Active Substance: NOREPINEPHRINE
     Indication: PRODUCT USED FOR UNKNOWN INDICATION
     Dosage: 0.5 MG/H
     Route: 065
  13. DOBUTAMINE [Suspect]
     Active Substance: DOBUTAMINE HYDROCHLORIDE
     Indication: PRODUCT USED FOR UNKNOWN INDICATION
     Dosage: UNK
     Route: 065
  14. HYPNOVEL [Suspect]
     Active Substance: MIDAZOLAM
     Indication: SEDATION
     Dosage: UNK
     Route: 065
  15. DIAZEPAM. [Suspect]
     Active Substance: DIAZEPAM
     Indication: ANXIOLYTIC THERAPY
     Dosage: 10 MG, QD, WITH CURRENT DOSE OF 10 MG/D
     Route: 065
  16. CYMBALTA [Suspect]
     Active Substance: DULOXETINE HYDROCHLORIDE
     Dosage: BETWEEN 3:30 P.M. AND 7:30 P.M., THE PATIENT INGESTED IN TOTAL
     Route: 048
  17. FLECAINIDE [Suspect]
     Active Substance: FLECAINIDE
     Indication: SUICIDE ATTEMPT
     Dosage: 4 G, BETWEEN 3:30 P.M. AND 7:30 P.M., THE PATIENT INGESTED IN TOTAL; SLOW?RELEASE
     Route: 048
  18. ACETAMINOPHEN (PARACETAMOL) [Suspect]
     Active Substance: ACETAMINOPHEN
     Indication: SUICIDE ATTEMPT
     Dosage: 2 G
     Route: 065
  19. SUFENTANIL [Suspect]
     Active Substance: SUFENTANIL
     Indication: SEDATION
     Dosage: UNK
     Route: 065

REACTIONS (29)
  - Tremor [Recovered/Resolved]
  - Hypotension [Recovered/Resolved]
  - Pneumonia aspiration [Recovering/Resolving]
  - Toxicity to various agents [Unknown]
  - Atrioventricular block [Recovered/Resolved]
  - Bradycardia [Recovered/Resolved]
  - Coma [Recovered/Resolved]
  - Atrioventricular block first degree [Recovered/Resolved]
  - Electrocardiogram QRS complex prolonged [Recovered/Resolved]
  - Muscle spasticity [Unknown]
  - Hypothermia [Recovered/Resolved]
  - Electrocardiogram PR prolongation [Recovered/Resolved]
  - Respiration abnormal [Recovered/Resolved]
  - Loss of consciousness [Recovering/Resolving]
  - Agitation [Unknown]
  - Atrioventricular block complete [Recovered/Resolved]
  - Hypertonia [Recovered/Resolved]
  - Ventricular tachycardia [Recovered/Resolved]
  - Reflexes abnormal [Recovered/Resolved]
  - Respiratory acidosis [Recovered/Resolved]
  - Pupillary disorder [Recovered/Resolved]
  - Suicide attempt [Unknown]
  - Breath sounds abnormal [Recovered/Resolved]
  - Ejection fraction decreased [Recovered/Resolved]
  - Bezoar [Recovered/Resolved]
  - Electrocardiogram QT prolonged [Recovered/Resolved]
  - Bundle branch block right [Recovered/Resolved]
  - Drug level increased [Unknown]
  - Intentional overdose [Recovering/Resolving]
